FAERS Safety Report 7740195-5 (Version None)
Quarter: 2011Q3

REPORT INFORMATION
  Report Type: 
  Country: None (occurrence: None)
  Receive Date: 20110909
  Receipt Date: 20110906
  Transmission Date: 20111222
  Serious: Yes (Other)
  Sender: FDA-Public Use
  Company Number: US-PFIZER INC-2011184893

PATIENT
  Sex: Female

DRUGS (3)
  1. ALPRAZOLAM [Suspect]
  2. NIACIN [Suspect]
  3. NEURONTIN [Suspect]
     Dosage: UNK
     Dates: start: 20110525, end: 20110816

REACTIONS (8)
  - ANXIETY [None]
  - PAIN IN EXTREMITY [None]
  - FEELING ABNORMAL [None]
  - PANIC DISORDER [None]
  - OROPHARYNGEAL PAIN [None]
  - INFLUENZA LIKE ILLNESS [None]
  - MALAISE [None]
  - DRUG INEFFECTIVE [None]
